FAERS Safety Report 6736087-0 (Version None)
Quarter: 2010Q2

REPORT INFORMATION
  Report Type: 
  Country: None (occurrence: None)
  Receive Date: 20100521
  Receipt Date: 20100511
  Transmission Date: 20101027
  Serious: Yes (Death, Hospitalization)
  Sender: FDA-Public Use
  Company Number: CA-ABBOTT-10P-028-0640686-00

PATIENT
  Sex: Female
  Weight: 80 kg

DRUGS (2)
  1. MAVIK [Suspect]
     Indication: ESSENTIAL HYPERTENSION
     Dosage: 2MG DAILY
     Dates: start: 20090209
  2. UNKNOWN CONCOMITANT MEDICATIONS [Concomitant]
     Indication: DRUG USE FOR UNKNOWN INDICATION

REACTIONS (1)
  - POST PROCEDURAL COMPLICATION [None]
